FAERS Safety Report 5427799-X (Version None)
Quarter: 2007Q3

REPORT INFORMATION
  Report Type: 
  Country: None (occurrence: None)
  Receive Date: 20070823
  Receipt Date: 20070813
  Transmission Date: 20080115
  Serious: No
  Sender: FDA-Public Use
  Company Number: 235533K07USA

PATIENT
  Age: 34 Year
  Sex: Female
  Weight: 63.5036 kg

DRUGS (3)
  1. REBIF [Suspect]
     Indication: MULTIPLE SCLEROSIS
     Dosage: 44 MCG, 3 IN 1 WEEKS, SUBCUTANEOUS
     Route: 058
     Dates: start: 20060517
  2. IBUPORFEN (IBUPROFEN) [Concomitant]
  3. PREDNISONE [Concomitant]

REACTIONS (7)
  - DYSKINESIA [None]
  - HYPOAESTHESIA [None]
  - LOSS OF CONSCIOUSNESS [None]
  - MULTIPLE SCLEROSIS [None]
  - PARAESTHESIA [None]
  - SOMNOLENCE [None]
  - UNRESPONSIVE TO STIMULI [None]
